FAERS Safety Report 17335859 (Version 2)
Quarter: 2021Q1

REPORT INFORMATION
  Report Type: Spontaneous
  Country: US (occurrence: US)
  Receive Date: 20200128
  Receipt Date: 20210122
  Transmission Date: 20210419
  Serious: Yes (Life-Threatening, Hospitalization)
  Sender: FDA-Public Use
  Company Number: US-TEVA-2020-US-1175329

PATIENT
  Age: 53 Year
  Sex: Female

DRUGS (1)
  1. SALBUTAMOL [Suspect]
     Active Substance: ALBUTEROL
     Indication: ASTHMA
     Dosage: INITIALLY TREATED WITH SALBUTAMOL NEBULISER AND THEREAFTER WITH INHALER
     Route: 055

REACTIONS (3)
  - Stress cardiomyopathy [Unknown]
  - Respiratory failure [Unknown]
  - Acute respiratory failure [Unknown]
